FAERS Safety Report 8505526-7 (Version None)
Quarter: 2012Q2

REPORT INFORMATION
  Report Type: 
  Country: None (occurrence: None)
  Receive Date: 20120405
  Receipt Date: 20090922
  Transmission Date: 20120825
  Serious: Yes (Hospitalization)
  Sender: FDA-Public Use
  Company Number: PHEH2009US11492

PATIENT
  Age: 56 Year
  Sex: Female

DRUGS (4)
  1. SYNTHROID [Concomitant]
  2. RECLAST [Suspect]
     Indication: OSTEOPOROSIS
     Dates: start: 20090911
  3. CALCITROL (CALCIUM CARBONATE, ERGOALCIFEROL, RETINOL) [Concomitant]
  4. VITAMIN D [Concomitant]

REACTIONS (4)
  - MUSCLE SPASMS [None]
  - BLOOD CALCIUM DECREASED [None]
  - HYPOAESTHESIA [None]
  - PARAESTHESIA [None]
